FAERS Safety Report 19658063 (Version 6)
Quarter: 2021Q4

REPORT INFORMATION
  Report Type: Spontaneous
  Country: PL (occurrence: PL)
  Receive Date: 20210804
  Receipt Date: 20211119
  Transmission Date: 20220303
  Serious: Yes (Other)
  Sender: FDA-Public Use
  Company Number: NVSC2021PL175292

PATIENT
  Age: 5 Year
  Sex: Female

DRUGS (9)
  1. DOXORUBICIN [Suspect]
     Active Substance: DOXORUBICIN
     Indication: Nephroblastoma
     Dosage: 27-WEEK POSTOPERATIVE CHEMOTHERAPY
     Route: 065
  2. CISPLATIN [Suspect]
     Active Substance: CISPLATIN
     Indication: Nephroblastoma
     Dosage: 2 CYCLES (CCE, SECOND-LINE CHEMOTHERAPY)
     Route: 065
  3. ETOPOSIDE [Suspect]
     Active Substance: ETOPOSIDE
     Indication: Nephroblastoma
     Dosage: 2 CYCLES OF CCE (SECOND-LINE CHEMOTHERAPY)
     Route: 065
  4. ETOPOSIDE [Suspect]
     Active Substance: ETOPOSIDE
     Dosage: 2 CYCLES OF ICE (SECOND-LINE CHEMOTHERAPY)
     Route: 065
  5. CARBOPLATIN [Suspect]
     Active Substance: CARBOPLATIN
     Indication: Nephroblastoma
     Dosage: 2 CYCLES OF ICE (SECOND LINE CHEMOTHERAPY)
     Route: 065
  6. ACTINOMYCIN D [Suspect]
     Active Substance: DACTINOMYCIN
     Indication: Nephroblastoma
     Dosage: 27-WEEK POSTOPERATIVE CHEMOTHERAPY
     Route: 065
  7. VINCRISTINE SULFATE [Suspect]
     Active Substance: VINCRISTINE SULFATE
     Indication: Nephroblastoma
     Dosage: 27-WEEK POSTOPERATIVE CHEMOTHERAPY
     Route: 065
  8. CYCLOPHOSPHAMIDE [Suspect]
     Active Substance: CYCLOPHOSPHAMIDE
     Indication: Nephroblastoma
     Dosage: 2 CYCLES OF CCE (SECOND-LINE CHEMOTHERAPY)
     Route: 065
  9. IFOSFAMIDE [Suspect]
     Active Substance: IFOSFAMIDE
     Indication: Nephroblastoma
     Dosage: 2 CYCLES OF CCE (SECOND-LINE CHEMOTHERAPY)
     Route: 065

REACTIONS (5)
  - Bone marrow failure [Unknown]
  - Fanconi syndrome [Unknown]
  - Disease recurrence [Recovered/Resolved]
  - Disease recurrence [Recovered/Resolved]
  - Product use in unapproved indication [Unknown]
